FAERS Safety Report 4886607-6 (Version None)
Quarter: 2005Q4

REPORT INFORMATION
  Report Type: 
  Country: None (occurrence: None)
  Receive Date: 20051220
  Receipt Date: 20050920
  Transmission Date: 20060501
  Serious: No
  Sender: FDA-Public Use
  Company Number: HQWYE588422SEP05

PATIENT
  Age: 55 Year
  Sex: Male

DRUGS (2)
  1. EFFEXOR XR [Suspect]
     Indication: DEPRESSION
     Dosage: INCREASED THE DOSE (OVERDOSE AMOUNT UNKNOWN), ORAL
     Route: 048
     Dates: start: 20050101, end: 20050101
  2. COUMADIN [Concomitant]

REACTIONS (28)
  - AGITATION [None]
  - ANGER [None]
  - ANXIETY [None]
  - ARTHRALGIA [None]
  - ASTHENIA [None]
  - CONDITION AGGRAVATED [None]
  - DEPRESSION [None]
  - DIZZINESS [None]
  - DRUG INEFFECTIVE [None]
  - DRUG WITHDRAWAL SYNDROME [None]
  - DRY MOUTH [None]
  - EPISTAXIS [None]
  - ERECTILE DYSFUNCTION [None]
  - FATIGUE [None]
  - FLAT AFFECT [None]
  - HEADACHE [None]
  - HEART RATE DECREASED [None]
  - HEART RATE IRREGULAR [None]
  - HOSTILITY [None]
  - INTENTIONAL OVERDOSE [None]
  - IRRITABILITY [None]
  - MEMORY IMPAIRMENT [None]
  - MENTAL IMPAIRMENT [None]
  - SCREAMING [None]
  - SKIN DISCOLOURATION [None]
  - SOCIAL AVOIDANT BEHAVIOUR [None]
  - SUICIDAL IDEATION [None]
  - UNEVALUABLE EVENT [None]
